FAERS Safety Report 6511230-7 (Version None)
Quarter: 2009Q4

REPORT INFORMATION
  Report Type: 
  Country: None (occurrence: None)
  Receive Date: 20091222
  Receipt Date: 20090302
  Transmission Date: 20100525
  Serious: No
  Sender: FDA-Public Use
  Company Number: US-ASTRAZENECA-2009UW05626

PATIENT
  Sex: Male

DRUGS (1)
  1. CRESTOR [Suspect]
     Route: 048
     Dates: start: 20080901

REACTIONS (6)
  - ABDOMINAL DISTENSION [None]
  - BACK PAIN [None]
  - DYSPEPSIA [None]
  - GASTRITIS [None]
  - RENAL PAIN [None]
  - VOMITING [None]
